FAERS Safety Report 8737669 (Version 3)
Quarter: 2013Q3

REPORT INFORMATION
  Report Type: Spontaneous
  Country: JP (occurrence: JP)
  Receive Date: 20120822
  Receipt Date: 20130930
  Transmission Date: 20140515
  Serious: Yes (Life-Threatening, Other)
  Sender: FDA-Public Use
  Company Number: JP-009507513-1208JPN003807

PATIENT
  Age: 60 Year
  Sex: Male

DRUGS (3)
  1. BRIDION INTRAVENOUS 500MG [Suspect]
     Indication: HYPOTONIA
     Route: 042
     Dates: start: 20120801, end: 20120801
  2. BRIDION INTRAVENOUS 500MG [Suspect]
     Indication: NEUROMUSCULAR BLOCKADE REVERSAL
  3. ROPION [Concomitant]
     Dosage: 50 MG, QD
     Route: 042
     Dates: start: 20120801, end: 20120801

REACTIONS (2)
  - Cardiac arrest [Recovering/Resolving]
  - Bradycardia [Unknown]
